FAERS Safety Report 9507163 (Version 1)
Quarter: 2013Q3

REPORT INFORMATION
  Report Type: Spontaneous
  Country: US (occurrence: US)
  Receive Date: 20130909
  Receipt Date: 20130909
  Transmission Date: 20140515
  Serious: Yes (Hospitalization, Other)
  Sender: FDA-Public Use
  Company Number: US-SANOFI-AVENTIS-2013SA087953

PATIENT
  Age: 67 Year
  Sex: Female

DRUGS (3)
  1. LANTUS [Suspect]
     Indication: DIABETES MELLITUS
     Dosage: DOSE:50 UNIT(S)
     Route: 051
  2. LANTUS [Suspect]
     Indication: DIABETES MELLITUS
     Dosage: DOSE:30 UNIT(S)
     Route: 051
  3. HUMALOG [Suspect]
     Dosage: USED TO TAKE 20 AND 30 UNITS OF HUMALOG BUT NOW SHE IS DOWN TO 2-6 UNITS AT A TIME
     Route: 065

REACTIONS (8)
  - Bacterial infection [Recovering/Resolving]
  - Blood blister [Not Recovered/Not Resolved]
  - Exostosis [Not Recovered/Not Resolved]
  - Arthrodesis [Not Recovered/Not Resolved]
  - Cardiac disorder [Not Recovered/Not Resolved]
  - Weight decreased [Not Recovered/Not Resolved]
  - Blood glucose decreased [Not Recovered/Not Resolved]
  - Blood glucose increased [Unknown]
